FAERS Safety Report 25005943 (Version 2)
Quarter: 2025Q3

REPORT INFORMATION
  Report Type: Spontaneous
  Country: EU (occurrence: EU)
  Receive Date: 20250224
  Receipt Date: 20250809
  Transmission Date: 20251021
  Serious: Yes (Hospitalization, Other)
  Sender: ALEXION PHARMACEUTICALS
  Company Number: EU-ASTRAZENECA-202502GLO019135NL

PATIENT
  Age: 63 Year
  Sex: Female

DRUGS (15)
  1. OMEPRAZOLE [Suspect]
     Active Substance: OMEPRAZOLE
     Indication: Abdominal pain upper
     Dosage: 1 PIECE 2 X PER DAY; EVERY 12 HOURS
     Dates: start: 20230501, end: 20230818
  2. OMEPRAZOLE [Suspect]
     Active Substance: OMEPRAZOLE
     Indication: Dyspepsia
  3. CANDESARTAN [Concomitant]
     Active Substance: CANDESARTAN
  4. QUETIAPINE [Concomitant]
     Active Substance: QUETIAPINE
  5. ASPIRIN [Concomitant]
     Active Substance: ASPIRIN
  6. ATORVASTATIN [Concomitant]
     Active Substance: ATORVASTATIN
  7. BARNIDIPINE [Concomitant]
     Active Substance: BARNIDIPINE
  8. DISULFIRAM [Concomitant]
     Active Substance: DISULFIRAM
  9. METFORMIN [Concomitant]
     Active Substance: METFORMIN HYDROCHLORIDE
     Indication: Metabolic acidosis
  10. METOCLOPRAMIDE [Concomitant]
     Active Substance: METOCLOPRAMIDE
  11. METOPROLOL [Concomitant]
     Active Substance: METOPROLOL
  12. PAROXETINE [Concomitant]
     Active Substance: PAROXETINE
  13. TICAGRELOR [Concomitant]
     Active Substance: TICAGRELOR
  14. PREGABALIN [Concomitant]
     Active Substance: PREGABALIN
     Indication: Neuropathy peripheral
     Route: 065
  15. GLICLAZIDE [Concomitant]
     Active Substance: GLICLAZIDE

REACTIONS (5)
  - Hypokalaemia [Recovered/Resolved]
  - Hypophosphataemia [Recovered/Resolved]
  - Hypomagnesaemia [Recovered/Resolved]
  - Nausea [Recovered/Resolved]
  - Vomiting [Recovered/Resolved]
